FAERS Safety Report 7677088-8 (Version None)
Quarter: 2011Q3

REPORT INFORMATION
  Report Type: 
  Country: None (occurrence: None)
  Receive Date: 20110811
  Receipt Date: 20110801
  Transmission Date: 20111222
  Serious: Yes (Hospitalization)
  Sender: FDA-Public Use
  Company Number: US-JNJFOC-20100705801

PATIENT
  Sex: Male
  Weight: 51.4 kg

DRUGS (4)
  1. REMICADE [Suspect]
     Route: 042
     Dates: start: 20100524, end: 20100624
  2. METRONIDAZOLE [Concomitant]
  3. REMICADE [Suspect]
     Dosage: TOTAL 10 DOSES
     Route: 042
     Dates: start: 20100413
  4. REMICADE [Suspect]
     Indication: CROHN'S DISEASE
     Route: 042
     Dates: start: 20090416

REACTIONS (2)
  - MALNUTRITION [None]
  - CROHN'S DISEASE [None]
